FAERS Safety Report 5134457-8 (Version None)
Quarter: 2006Q4

REPORT INFORMATION
  Report Type: 
  Country: None (occurrence: None)
  Receive Date: 20061023
  Receipt Date: 20061023
  Transmission Date: 20070319
  Serious: No
  Sender: FDA-Public Use
  Company Number: None

PATIENT

DRUGS (7)
  1. CETUXIMAB [Suspect]
  2. GEMCITABINE [Suspect]
  3. .. [Concomitant]
  4. .. [Concomitant]
  5. .. [Concomitant]
  6. .. [Concomitant]
  7. .. [Concomitant]

REACTIONS (15)
  - ABDOMINAL PAIN [None]
  - ARTERIAL INJURY [None]
  - CONDITION AGGRAVATED [None]
  - FALL [None]
  - HEAD INJURY [None]
  - LOSS OF CONSCIOUSNESS [None]
  - MENTAL STATUS CHANGES [None]
  - NAUSEA [None]
  - NERVOUS SYSTEM DISORDER [None]
  - PAIN [None]
  - RESPIRATORY RATE DECREASED [None]
  - SUBDURAL HAEMATOMA [None]
  - URINE OUTPUT DECREASED [None]
  - VOMITING [None]
  - WEIGHT DECREASED [None]
